FAERS Safety Report 24095518 (Version 1)
Quarter: 2024Q3

REPORT INFORMATION
  Report Type: Other
  Country: US (occurrence: US)
  Receive Date: 20240716
  Receipt Date: 20240716
  Transmission Date: 20241016
  Serious: Yes (Other)
  Sender: MARKSANS
  Company Number: US-Marksans Pharma Limited-2159145

PATIENT

DRUGS (1)
  1. FLUOXETINE [Suspect]
     Active Substance: FLUOXETINE HYDROCHLORIDE
     Indication: Major depression
     Route: 065

REACTIONS (4)
  - Faecaloma [Unknown]
  - Intentional overdose [Unknown]
  - Suicidal ideation [Unknown]
  - Suicide attempt [Unknown]
